FAERS Safety Report 11528753 (Version 1)
Quarter: 2015Q3

REPORT INFORMATION
  Report Type: Spontaneous
  Country: US (occurrence: None)
  Receive Date: 20150918
  Receipt Date: 20150918
  Transmission Date: 20151125
  Serious: Yes (Other)
  Sender: FDA-Public Use
  Company Number: None

PATIENT
  Age: 85 Year
  Sex: Male

DRUGS (9)
  1. VITAMIN B12 [Concomitant]
     Active Substance: CYANOCOBALAMIN
  2. WELCHOL [Suspect]
     Active Substance: COLESEVELAM HYDROCHLORIDE
     Indication: BLOOD CHOLESTEROL INCREASED
     Dosage: 650 MG X3 A.M. + NIGHT, DAILY
     Route: 048
     Dates: start: 20150801, end: 20150806
  3. LOSARTAN. [Concomitant]
     Active Substance: LOSARTAN
  4. FINASTERIDE. [Concomitant]
     Active Substance: FINASTERIDE
  5. TAMSULOSIN [Concomitant]
     Active Substance: TAMSULOSIN
  6. VITAMIN C [Concomitant]
     Active Substance: ASCORBIC ACID
  7. CARVEDILOL. [Concomitant]
     Active Substance: CARVEDILOL
  8. NIACINAMIDE [Concomitant]
     Active Substance: NIACINAMIDE
  9. COQ10 [Concomitant]
     Active Substance: UBIDECARENONE

REACTIONS (3)
  - Pruritus [None]
  - Eye pruritus [None]
  - Muscle spasms [None]

NARRATIVE: CASE EVENT DATE: 20150806
